FAERS Safety Report 21103719 (Version 1)
Quarter: 2022Q3

REPORT INFORMATION
  Report Type: Other
  Country: CA (occurrence: CA)
  Receive Date: 20220720
  Receipt Date: 20220720
  Transmission Date: 20221027
  Serious: Yes (Other)
  Sender: FDA-Public Use
  Company Number: CA-CELLTRION INC.-2022CA011467

PATIENT

DRUGS (2)
  1. TRASTUZUMAB [Suspect]
     Active Substance: TRASTUZUMAB
     Indication: Salivary gland cancer
     Route: 065
  2. KADCYLA [Suspect]
     Active Substance: ADO-TRASTUZUMAB EMTANSINE
     Indication: Salivary gland cancer
     Dosage: 375 MILLIGRAM, 1 EVERY 3 WEEKS
     Route: 042

REACTIONS (5)
  - Infection [Unknown]
  - Product use in unapproved indication [Unknown]
  - Device issue [Unknown]
  - Off label use [Unknown]
  - Off label use [Unknown]
